FAERS Safety Report 19173011 (Version 1)
Quarter: 2021Q2

REPORT INFORMATION
  Report Type: Spontaneous
  Country: US (occurrence: US)
  Receive Date: 20210422
  Receipt Date: 20210422
  Transmission Date: 20210717
  Serious: Yes (Death)
  Sender: FDA-Public Use
  Company Number: None

PATIENT
  Age: 55 Year
  Sex: Female
  Weight: 63.78 kg

DRUGS (12)
  1. MEKTOVI [Suspect]
     Active Substance: BINIMETINIB
     Indication: NEOPLASM MALIGNANT
     Route: 048
     Dates: start: 20210317, end: 20210322
  2. IBUPROFEN 800MG [Concomitant]
     Active Substance: IBUPROFEN
  3. PROCHLORPERAZINE 10MG [Concomitant]
  4. BRAFTOVI [Suspect]
     Active Substance: ENCORAFENIB
     Indication: NEOPLASM MALIGNANT
     Route: 048
     Dates: start: 20210317, end: 20210322
  5. CALTRATE 600 + D3 [Concomitant]
  6. LOVENOX 120 MG [Concomitant]
  7. LASIX 20MG [Concomitant]
  8. POTASSIUM CHLORIDE ER 20 MEQ [Concomitant]
  9. K PHOS NEUTRAL [Concomitant]
     Active Substance: POTASSIUM PHOSPHATE, MONOBASIC\SODIUM PHOSPHATE, DIBASIC, ANHYDROUS\SODIUM PHOSPHATE, MONOBASIC, MONOHYDRATE
  10. PREDNISONE 10MG [Concomitant]
     Active Substance: PREDNISONE
  11. MAGNEISUM OXIDE 400MG [Concomitant]
  12. HYDROCORTISONE 2.5% [Concomitant]
     Active Substance: HYDROCORTISONE

REACTIONS (1)
  - Death [None]

NARRATIVE: CASE EVENT DATE: 20210322
